FAERS Safety Report 25819726 (Version 1)
Quarter: 2025Q3

REPORT INFORMATION
  Report Type: Spontaneous
  Country: EU (occurrence: EU)
  Receive Date: 20250918
  Receipt Date: 20250918
  Transmission Date: 20251020
  Serious: Yes (Hospitalization)
  Sender: SANDOZ
  Company Number: None

PATIENT
  Age: 15 Year
  Sex: Female
  Weight: 55 kg

DRUGS (3)
  1. HYRIMOZ [Suspect]
     Active Substance: ADALIMUMAB-ADAZ
     Indication: Juvenile psoriatic arthritis
     Dosage: 40 MG, Q2W,40MG EVERY 2 WEEKS
     Route: 058
     Dates: start: 20240103
  2. METHOTREXATE [Suspect]
     Active Substance: METHOTREXATE
     Indication: Juvenile psoriatic arthritis
     Dosage: 10 MG, QW,10MG EVERY WEEK, STRENGTH (10MG)SOLUTION FOR INJECTION
     Route: 058
     Dates: start: 20240828
  3. MERCILON [Suspect]
     Active Substance: DESOGESTREL\ETHINYL ESTRADIOL
     Indication: Hormonal contraception
     Dosage: 1 DF, QD,ADMINISTERED FROM 5/6/25 ONCE DAILY  ORALLY (INITIATED IN GYNECOLOGY), AFTER A  REACTION TH
     Route: 048
     Dates: start: 20250605, end: 20250608

REACTIONS (6)
  - Palpitations [Recovered/Resolved]
  - Musculoskeletal stiffness [Recovered/Resolved]
  - Presyncope [Recovered/Resolved]
  - Pain in extremity [Recovered/Resolved]
  - Dyspnoea [Recovered/Resolved]
  - Pyrexia [Recovered/Resolved]

NARRATIVE: CASE EVENT DATE: 20250608
